FAERS Safety Report 8261081-0 (Version None)
Quarter: 2012Q2

REPORT INFORMATION
  Report Type: 
  Country: None (occurrence: None)
  Receive Date: 20120405
  Receipt Date: 20120328
  Transmission Date: 20120825
  Serious: Yes (Other)
  Sender: FDA-Public Use
  Company Number: PHFR2011GB007171

PATIENT
  Sex: Male

DRUGS (2)
  1. CLOZARIL [Suspect]
     Route: 048
  2. CLOZARIL [Suspect]
     Indication: SCHIZOPHRENIA
     Dosage: 275 MG,DAILY
     Route: 048
     Dates: start: 20111201

REACTIONS (4)
  - INFECTION [None]
  - TACHYCARDIA [None]
  - HYPERHIDROSIS [None]
  - AGITATION [None]
